FAERS Safety Report 12162577 (Version 1)
Quarter: 2016Q1

REPORT INFORMATION
  Report Type: Spontaneous
  Country: US (occurrence: None)
  Receive Date: 20160308
  Receipt Date: 20160308
  Transmission Date: 20160526
  Serious: Yes (Other)
  Sender: FDA-Public Use
  Company Number: None

PATIENT
  Age: 66 Year
  Sex: Female
  Weight: 81.65 kg

DRUGS (6)
  1. CEFUROXIME AXETIL 250 MG LUPIN PHARMACEUTICALS [Suspect]
     Active Substance: CEFUROXIME AXETIL
     Indication: SINUSITIS
     Dosage: 1 TABLET, TWICE DAILY, TAKEN BY MOUTH
  2. CITRACAL [Concomitant]
     Active Substance: CALCIUM CITRATE
  3. FISH OIL [Concomitant]
     Active Substance: FISH OIL
  4. OSTEO BIFLEX [Concomitant]
     Active Substance: CHONDROITIN SULFATE A\GLUCOSAMINE
  5. COQ10 [Concomitant]
     Active Substance: UBIDECARENONE
  6. CRESTOR [Concomitant]
     Active Substance: ROSUVASTATIN CALCIUM

REACTIONS (5)
  - Dysgeusia [None]
  - Joint swelling [None]
  - Back pain [None]
  - Pain in extremity [None]
  - Arthralgia [None]

NARRATIVE: CASE EVENT DATE: 20160227
